FAERS Safety Report 4681047-7 (Version None)
Quarter: 2005Q2

REPORT INFORMATION
  Report Type: 
  Country: None (occurrence: None)
  Receive Date: 20050601
  Receipt Date: 20050519
  Transmission Date: 20051028
  Serious: Yes (Other)
  Sender: FDA-Public Use
  Company Number: 2005078371

PATIENT
  Age: 65 Year
  Sex: Female
  Weight: 118.8424 kg

DRUGS (10)
  1. NORVASC [Suspect]
     Indication: HYPERTENSION
     Dosage: SEE IMAGE
     Dates: start: 20050401
  2. . [Concomitant]
  3. CORTICOSTEROIDS (CORTICOSTEROIDS) [Suspect]
     Indication: CARDIAC FAILURE
  4. METOPROLOL TARTRATE [Concomitant]
  5. LISINOPRIL [Concomitant]
  6. CATAPRES [Concomitant]
  7. LANTUS [Concomitant]
  8. ZETIA [Concomitant]
  9. NIACIN [Concomitant]
  10. METFORMIN HCL [Concomitant]

REACTIONS (7)
  - ANGIOPLASTY [None]
  - BLOOD GLUCOSE INCREASED [None]
  - CARDIAC FAILURE [None]
  - DIABETES MELLITUS INADEQUATE CONTROL [None]
  - NASOPHARYNGITIS [None]
  - PAIN IN EXTREMITY [None]
  - VASCULAR OCCLUSION [None]
